FAERS Safety Report 7636063-X (Version None)
Quarter: 2011Q3

REPORT INFORMATION
  Report Type: 
  Country: None (occurrence: None)
  Receive Date: 20110726
  Receipt Date: 20110722
  Transmission Date: 20111222
  Serious: Yes (Hospitalization, Disabling, Other)
  Sender: FDA-Public Use
  Company Number: US-PFIZER INC-2011167367

PATIENT
  Sex: Female
  Weight: 108 kg

DRUGS (7)
  1. LOPID [Suspect]
     Indication: BLOOD CHOLESTEROL INCREASED
     Dosage: 600 MG, 2X/DAY
     Route: 048
  2. ADVAIR DISKUS 100/50 [Concomitant]
     Indication: EMPHYSEMA
  3. POTASSIUM [Concomitant]
     Dosage: UNK
  4. ADVAIR DISKUS 100/50 [Concomitant]
     Indication: CHRONIC OBSTRUCTIVE PULMONARY DISEASE
  5. ADVAIR DISKUS 100/50 [Concomitant]
     Indication: ASTHMA
     Dosage: UNK
  6. RHINOCORT [Concomitant]
     Indication: SINUS DISORDER
     Dosage: UNK
  7. AMLODIPINE [Concomitant]
     Indication: HYPERTENSION
     Dosage: UNK

REACTIONS (6)
  - OSTEOMYELITIS [None]
  - GOUT [None]
  - TOOTH FRACTURE [None]
  - ARTHRITIS INFECTIVE [None]
  - LOCALISED INFECTION [None]
  - DIABETES MELLITUS [None]
